FAERS Safety Report 21777744 (Version 1)
Quarter: 2022Q4

REPORT INFORMATION
  Report Type: Spontaneous
  Country: US (occurrence: None)
  Receive Date: 20221226
  Receipt Date: 20221226
  Transmission Date: 20230113
  Serious: No
  Sender: FDA-Public Use
  Company Number: 2022A403850

PATIENT
  Age: 53 Year
  Sex: Female
  Weight: 63.5 kg

DRUGS (1)
  1. FARXIGA [Suspect]
     Active Substance: DAPAGLIFLOZIN PROPANEDIOL
     Indication: Renal disorder
     Route: 048
     Dates: start: 20221205

REACTIONS (2)
  - Fatigue [Unknown]
  - Sleep deficit [Unknown]

NARRATIVE: CASE EVENT DATE: 20221207
